FAERS Safety Report 20687377 (Version 1)
Quarter: 2022Q2

REPORT INFORMATION
  Report Type: Report from Study
  Country: BR (occurrence: BR)
  Receive Date: 20220408
  Receipt Date: 20220408
  Transmission Date: 20220720
  Serious: Yes (Other)
  Sender: FDA-Public Use
  Company Number: BR-ABBVIE-22K-020-4349933-00

PATIENT
  Age: 68 Year
  Sex: Female
  Weight: 58 kg

DRUGS (4)
  1. RINVOQ [Suspect]
     Active Substance: UPADACITINIB
     Indication: Rheumatoid arthritis
     Route: 048
  2. RINVOQ [Suspect]
     Active Substance: UPADACITINIB
     Route: 048
     Dates: start: 20211214
  3. ARAVA [Concomitant]
     Active Substance: LEFLUNOMIDE
     Indication: Rheumatoid arthritis
  4. MELOXICAM [Concomitant]
     Active Substance: MELOXICAM
     Indication: Rheumatoid arthritis

REACTIONS (13)
  - Loss of consciousness [Recovered/Resolved]
  - Fatigue [Unknown]
  - Myalgia [Unknown]
  - Ligament sprain [Unknown]
  - Somnolence [Unknown]
  - Discouragement [Unknown]
  - Arthralgia [Unknown]
  - Electric shock sensation [Unknown]
  - Mobility decreased [Unknown]
  - Spinal disorder [Unknown]
  - Insomnia [Unknown]
  - Asthenia [Unknown]
  - Hyperhidrosis [Unknown]

NARRATIVE: CASE EVENT DATE: 20220301
